FAERS Safety Report 19897273 (Version 3)
Quarter: 2021Q4

REPORT INFORMATION
  Report Type: Other
  Country: US (occurrence: US)
  Receive Date: 20210930
  Receipt Date: 20211018
  Transmission Date: 20220303
  Serious: No
  Sender: FDA-Public Use
  Company Number: US-ROCHE-2921142

PATIENT
  Sex: Male
  Weight: 56.75 kg

DRUGS (3)
  1. OCREVUS [Suspect]
     Active Substance: OCRELIZUMAB
     Indication: Primary progressive multiple sclerosis
     Dosage: DATE OF TREATMENT- 06/MAR/2019, 13/MAR/2019, 27/MAR/2019
     Route: 042
     Dates: start: 2017, end: 202103
  2. OXCARBAZEPINE [Concomitant]
     Active Substance: OXCARBAZEPINE
     Indication: Transient ischaemic attack
     Route: 048
     Dates: start: 2015
  3. OMEPRAZOLE [Concomitant]
     Active Substance: OMEPRAZOLE
     Indication: Gastrooesophageal reflux disease
     Dosage: OVER THE COUNTER
     Route: 048

REACTIONS (1)
  - JC polyomavirus test positive [Recovered/Resolved]

NARRATIVE: CASE EVENT DATE: 20180101
